FAERS Safety Report 12663961 (Version 8)
Quarter: 2017Q2

REPORT INFORMATION
  Report Type: Spontaneous
  Country: FR (occurrence: FR)
  Receive Date: 20160818
  Receipt Date: 20170413
  Transmission Date: 20170830
  Serious: Yes (Hospitalization, Other)
  Sender: FDA-Public Use
  Company Number: FR-CELGENEUS-FRA-2016083967

PATIENT
  Age: 70 Year
  Sex: Female
  Weight: 60 kg

DRUGS (25)
  1. DARATUMUMAB [Suspect]
     Active Substance: DARATUMUMAB
     Route: 041
     Dates: start: 20160613
  2. DEXAMETHASONE ORAL [Suspect]
     Active Substance: DEXAMETHASONE
     Route: 048
     Dates: start: 20160122
  3. REVLIMID [Suspect]
     Active Substance: LENALIDOMIDE
     Dosage: 25 MILLIGRAM
     Route: 048
     Dates: start: 20170102
  4. DARATUMUMAB [Suspect]
     Active Substance: DARATUMUMAB
     Route: 041
     Dates: start: 20160531
  5. ENOXAPARIN [Concomitant]
     Active Substance: ENOXAPARIN
     Indication: THROMBOSIS PROPHYLAXIS
     Dosage: 4000 IU (INTERNATIONAL UNIT)
     Route: 058
     Dates: start: 20160122
  6. REVLIMID [Suspect]
     Active Substance: LENALIDOMIDE
     Dosage: 10 MILLIGRAM
     Route: 048
     Dates: start: 20160913
  7. CALCIUM FOLINATE [Concomitant]
     Active Substance: LEUCOVORIN CALCIUM
     Indication: VITAMIN C
  8. DARATUMUMAB [Suspect]
     Active Substance: DARATUMUMAB
     Route: 041
     Dates: start: 20160812
  9. CALCIUM FOLINATE [Concomitant]
     Active Substance: LEUCOVORIN CALCIUM
     Indication: PROPHYLAXIS
     Route: 048
     Dates: start: 20160125
  10. VALACICLOVIR [Concomitant]
     Active Substance: VALACYCLOVIR HYDROCHLORIDE
     Indication: ANTIVIRAL PROPHYLAXIS
     Dosage: 1000 MILLIGRAM
     Route: 048
     Dates: start: 20160122
  11. REVLIMID [Suspect]
     Active Substance: LENALIDOMIDE
     Dosage: 25 MILLIGRAM
     Route: 048
     Dates: start: 20160813
  12. DARATUMUMAB [Suspect]
     Active Substance: DARATUMUMAB
     Indication: PLASMA CELL MYELOMA
     Route: 041
     Dates: start: 20160122
  13. DARATUMUMAB [Suspect]
     Active Substance: DARATUMUMAB
     Route: 041
     Dates: start: 20161010
  14. DARATUMUMAB [Suspect]
     Active Substance: DARATUMUMAB
     Route: 041
     Dates: start: 20161205
  15. DEXAMETHASONE ORAL [Suspect]
     Active Substance: DEXAMETHASONE
     Route: 048
     Dates: start: 20160524
  16. DEXAMETHASONE ORAL [Suspect]
     Active Substance: DEXAMETHASONE
     Route: 048
     Dates: start: 20160531
  17. DEXAMETHASONE ORAL [Suspect]
     Active Substance: DEXAMETHASONE
     Route: 048
     Dates: start: 20160607
  18. BACTRIM [Concomitant]
     Active Substance: SULFAMETHOXAZOLE\TRIMETHOPRIM
     Indication: ANTIFUNGAL PROPHYLAXIS
     Route: 048
     Dates: start: 20160122
  19. PHENOXYMETHYLPENICILLIN [Concomitant]
     Active Substance: PENICILLIN V
     Indication: INFECTION PROPHYLAXIS
     Dosage: 2000000 IU (INTERNATIONAL UNIT)
     Route: 048
     Dates: start: 20160122
  20. LEVOTHYROXIN [Concomitant]
     Active Substance: LEVOTHYROXINE
     Indication: HYPOTHYROIDISM
     Dosage: 75 MICROGRAM
     Route: 048
     Dates: start: 20160122
  21. REVLIMID [Suspect]
     Active Substance: LENALIDOMIDE
     Indication: PLASMA CELL MYELOMA
     Dosage: 25 MILLIGRAM
     Route: 048
     Dates: start: 20160122
  22. REVLIMID [Suspect]
     Active Substance: LENALIDOMIDE
     Dosage: 10 MILLIGRAM
     Route: 048
     Dates: start: 20160517
  23. DARATUMUMAB [Suspect]
     Active Substance: DARATUMUMAB
     Route: 041
     Dates: start: 20160311
  24. DARATUMUMAB [Suspect]
     Active Substance: DARATUMUMAB
     Route: 041
     Dates: start: 20160912
  25. DEXAMETHASONE ORAL [Suspect]
     Active Substance: DEXAMETHASONE
     Indication: PLASMA CELL MYELOMA
     Dosage: 20 MILLIGRAM
     Route: 048
     Dates: start: 20160122

REACTIONS (1)
  - Deafness bilateral [Recovered/Resolved with Sequelae]

NARRATIVE: CASE EVENT DATE: 20160518
